FAERS Safety Report 4264956-2 (Version None)
Quarter: 2004Q1

REPORT INFORMATION
  Report Type: 
  Country: None (occurrence: None)
  Receive Date: 20040106
  Receipt Date: 20031114
  Transmission Date: 20041129
  Serious: Yes (Other)
  Sender: FDA-Public Use
  Company Number: 600925

PATIENT
  Age: 29 Year
  Sex: Male
  Weight: 83 kg

DRUGS (6)
  1. IMMUNE GLOBULIN INTRAVENOUS (HUMAN), 10% (IMMUNE GLOBULIN) [Suspect]
     Indication: IMMUNODEFICIENCY COMMON VARIABLE
     Dosage: 36.85 GM;Q3W;INTRAVENOUS
     Route: 042
     Dates: start: 20021105, end: 20030422
  2. GAMMAGARD S/D [Suspect]
     Indication: IMMUNODEFICIENCY COMMON VARIABLE
     Dosage: 36.9 GM;Q3W;INTRAVENOUS
     Route: 042
     Dates: start: 20020903, end: 20021015
  3. RHINOCORT [Concomitant]
  4. OTRIVIN [Concomitant]
  5. ACETAMINOPHEN [Concomitant]
  6. SINUPRET [Concomitant]

REACTIONS (4)
  - AUTOIMMUNE HEPATITIS [None]
  - DRUG TOXICITY [None]
  - HEPATIC NECROSIS [None]
  - HEPATITIS A ANTIBODY POSITIVE [None]
